FAERS Safety Report 9625896 (Version 2)
Quarter: 2013Q4

REPORT INFORMATION
  Report Type: Spontaneous
  Country: SE (occurrence: SE)
  Receive Date: 20131016
  Receipt Date: 20131016
  Transmission Date: 20140711
  Serious: Yes (Other)
  Sender: FDA-Public Use
  Company Number: SE-BAYER-2013-120109

PATIENT
  Age: 30 Year
  Sex: Female

DRUGS (4)
  1. CIPROFLOXACIN [Suspect]
     Dosage: UNK
     Route: 048
     Dates: start: 20130529, end: 20130531
  2. CIRCADIN [Interacting]
     Dosage: UNK
     Route: 048
     Dates: start: 20130515, end: 20130601
  3. ZOPIKLON [Concomitant]
  4. BUPROPION [Concomitant]

REACTIONS (6)
  - Drug interaction [Unknown]
  - Nausea [Unknown]
  - Vomiting [Unknown]
  - Abdominal pain [Unknown]
  - Dizziness [Unknown]
  - Back pain [Unknown]
